FAERS Safety Report 10521850 (Version 1)
Quarter: 2014Q4

REPORT INFORMATION
  Report Type: Spontaneous
  Country: US (occurrence: None)
  Receive Date: 20141003
  Receipt Date: 20141003
  Transmission Date: 20150528
  Serious: Yes (Other)
  Sender: FDA-Public Use
  Company Number: 1265187

PATIENT
  Age: 52 Year
  Sex: Male

DRUGS (4)
  1. LANTUS (INSULIN GLARGINE) (INJECTION) [Concomitant]
  2. LISINOPRIL (LISINOPRIL) (TABLET) [Concomitant]
  3. COPEGUS [Suspect]
     Active Substance: RIBAVIRIN
     Indication: HEPATITIS C
     Dosage: 400 MG IN THE MORNING AND 600 MG IN THE EVENING (2 IN 1 D), ORAL
  4. PEGASYS [Suspect]
     Active Substance: PEGINTERFERON ALFA-2A
     Indication: HEPATITIS C
     Route: 058
     Dates: start: 20130722, end: 20130819

REACTIONS (1)
  - Platelet count decreased [None]

NARRATIVE: CASE EVENT DATE: 20130816
